FAERS Safety Report 12386857 (Version 6)
Quarter: 2016Q3

REPORT INFORMATION
  Report Type: Spontaneous
  Country: JP (occurrence: JP)
  Receive Date: 20160519
  Receipt Date: 20160812
  Transmission Date: 20161109
  Serious: Yes (Death, Life-Threatening, Other)
  Sender: FDA-Public Use
  Company Number: JP-ABBVIE-16P-087-1630974-00

PATIENT
  Age: 46 Year
  Sex: Male

DRUGS (8)
  1. BETAMETHASONE BUTYRATE PROPIONATE [Concomitant]
     Active Substance: BETAMETHASONE BUTYRATE PROPIONATE
     Indication: PRODUCT USED FOR UNKNOWN INDICATION
     Route: 061
  2. VIEKIRAX [Suspect]
     Active Substance: OMBITASVIR\PARITAPREVIR\RITONAVIR
     Indication: CHRONIC HEPATITIS C
     Route: 048
     Dates: start: 20160513, end: 20160515
  3. NIFEDIPINE. [Interacting]
     Active Substance: NIFEDIPINE
     Indication: HYPERTENSION
     Dosage: 20 MG (AM), 10 MG (PM)
     Route: 048
     Dates: end: 20160515
  4. PREDNISOLONE VALERATE ACETATE [Concomitant]
     Active Substance: PREDNISOLONE VALERATE ACETATE
     Indication: PRODUCT USED FOR UNKNOWN INDICATION
     Route: 061
  5. MAXACALCITOL [Concomitant]
     Active Substance: MAXACALCITOL
     Indication: PRODUCT USED FOR UNKNOWN INDICATION
     Route: 061
  6. FEXOFENADINE HYDROCHLORIDE. [Concomitant]
     Active Substance: FEXOFENADINE HYDROCHLORIDE
     Indication: PRODUCT USED FOR UNKNOWN INDICATION
     Route: 048
     Dates: start: 20160406
  7. AZILSARTAN [Concomitant]
     Active Substance: AZILSARTAN KAMEDOXOMIL
     Indication: HYPERTENSION
     Route: 048
     Dates: end: 20160515
  8. BETAMETHASONE DIPROPIONATE W/CALCIPOTRIOL [Concomitant]
     Indication: PRODUCT USED FOR UNKNOWN INDICATION
     Route: 061

REACTIONS (31)
  - Circulatory collapse [Unknown]
  - Hepatorenal syndrome [Unknown]
  - Ventricular extrasystoles [Unknown]
  - Transaminases increased [Unknown]
  - Gastrointestinal haemorrhage [Unknown]
  - Liver disorder [Unknown]
  - Blood lactate dehydrogenase increased [Unknown]
  - Drug interaction [Not Recovered/Not Resolved]
  - Coagulopathy [Unknown]
  - Blood creatine phosphokinase increased [Unknown]
  - Septic shock [Unknown]
  - Multiple organ dysfunction syndrome [Not Recovered/Not Resolved]
  - Hyperlactacidaemia [Unknown]
  - Non-cardiogenic pulmonary oedema [Unknown]
  - Acute hepatic failure [Fatal]
  - Altered state of consciousness [Not Recovered/Not Resolved]
  - Blood pressure decreased [Not Recovered/Not Resolved]
  - Hyperkalaemia [Fatal]
  - Oxygen saturation abnormal [Unknown]
  - Vascular resistance systemic increased [Unknown]
  - Electrocardiogram T wave abnormal [Unknown]
  - Cardiac arrest [Fatal]
  - Metabolic acidosis [Unknown]
  - Acute kidney injury [Unknown]
  - Activated partial thromboplastin time prolonged [Unknown]
  - Electrocardiogram QRS complex prolonged [Unknown]
  - Alkalosis [Unknown]
  - Hepatic encephalopathy [Unknown]
  - Anaemia [Unknown]
  - Cytokine storm [Unknown]
  - Ventricular fibrillation [Unknown]

NARRATIVE: CASE EVENT DATE: 20160516
